FAERS Safety Report 4805141-2 (Version None)
Quarter: 2005Q4

REPORT INFORMATION
  Report Type: 
  Country: None (occurrence: None)
  Receive Date: 20051017
  Receipt Date: 20050926
  Transmission Date: 20060501
  Serious: Yes (Hospitalization)
  Sender: FDA-Public Use
  Company Number: APP200500459

PATIENT
  Age: 88 Year
  Sex: Female

DRUGS (10)
  1. PAMIDRONATE DISODIUM [Suspect]
     Indication: METASTASES TO BONE
     Dosage: ONCE, INTRAVENOUS
     Route: 042
     Dates: start: 20050730, end: 20050730
  2. ASPIRIN [Concomitant]
  3. KLONOPIN [Concomitant]
  4. SEMARA [Concomitant]
  5. HYDROCHLOROTHIAZIDE [Concomitant]
  6. PREVACID [Concomitant]
  7. CELEBREX [Concomitant]
  8. ZOLOFT [Concomitant]
  9. MILK OF MAGNESIA TAB [Concomitant]
  10. LORATAB (LORATADINE) [Concomitant]

REACTIONS (3)
  - BLOOD CREATININE INCREASED [None]
  - OPTIC NEURITIS [None]
  - RED BLOOD CELLS CSF POSITIVE [None]
